FAERS Safety Report 9852108 (Version 1)
Quarter: 2013Q4

REPORT INFORMATION
  Report Type: Spontaneous
  Country: US (occurrence: None)
  Receive Date: 20131127
  Receipt Date: 20131127
  Transmission Date: 20140711
  Serious: No
  Sender: FDA-Public Use
  Company Number: 223242LEO

PATIENT
  Age: 65 Year
  Sex: Female

DRUGS (1)
  1. PICATO [Suspect]
     Indication: PRECANCEROUS SKIN LESION
     Dosage: NOSE
     Dates: start: 20130809, end: 20130809

REACTIONS (3)
  - Application site erythema [None]
  - Application site vesicles [None]
  - Incorrect drug administration duration [None]
